FAERS Safety Report 4441078-9 (Version None)
Quarter: 2004Q3

REPORT INFORMATION
  Report Type: 
  Country: None (occurrence: None)
  Receive Date: 20040827
  Receipt Date: 20040224
  Transmission Date: 20050211
  Serious: Yes (Other)
  Sender: FDA-Public Use
  Company Number: 03-0014SU

PATIENT
  Sex: Male

DRUGS (2)
  1. SULAR [Suspect]
     Indication: HYPERTENSION
     Dosage: 10 MG., QD, PO
     Route: 048
  2. NORVASC [Concomitant]

REACTIONS (1)
  - GINGIVAL SWELLING [None]
